FAERS Safety Report 15704154 (Version 1)
Quarter: 2018Q4

REPORT INFORMATION
  Report Type: Spontaneous
  Country: US (occurrence: US)
  Receive Date: 20181127
  Receipt Date: 20181127
  Transmission Date: 20190205
  Serious: No
  Sender: FDA-Public Use
  Company Number: None

PATIENT
  Age: 59 Year
  Sex: Female
  Weight: 59.85 kg

DRUGS (7)
  1. ZOFRAN [Concomitant]
     Active Substance: ONDANSETRON HYDROCHLORIDE
  2. ATIVAN [Concomitant]
     Active Substance: LORAZEPAM
  3. LINZESS [Concomitant]
     Active Substance: LINACLOTIDE
  4. CAPECITABINE 500 MG [Suspect]
     Active Substance: CAPECITABINE
     Route: 048
  5. COLASE [Concomitant]
  6. OXYCODONE [Concomitant]
     Active Substance: OXYCODONE
  7. MOTRIN [Concomitant]
     Active Substance: IBUPROFEN

REACTIONS (3)
  - Hip surgery [None]
  - Therapy cessation [None]
  - Surgery [None]
